FAERS Safety Report 12077987 (Version 1)
Quarter: 2016Q1

REPORT INFORMATION
  Report Type: Report from Study
  Country: RO (occurrence: RO)
  Receive Date: 20160215
  Receipt Date: 20160215
  Transmission Date: 20160526
  Serious: Yes (Life-Threatening, Hospitalization)
  Sender: FDA-Public Use
  Company Number: RO-ABBVIE-16P-135-1554555-00

PATIENT
  Age: 63 Year
  Sex: Female
  Weight: 75 kg

DRUGS (2)
  1. VIEKIRAX [Suspect]
     Active Substance: OMBITASVIR\PARITAPREVIR\RITONAVIR
     Indication: HEPATIC CIRRHOSIS
     Dosage: 2 TABL/MORNING
     Route: 048
     Dates: start: 20160113, end: 20160203
  2. EXVIERA [Suspect]
     Active Substance: DASABUVIR
     Indication: HEPATIC CIRRHOSIS
     Dosage: 2 TABL/1 IN THE MORNING,1 IN THE EVENING
     Route: 048
     Dates: start: 20160113, end: 20160203

REACTIONS (12)
  - Faeces pale [Recovering/Resolving]
  - Vomiting [Recovered/Resolved]
  - Bilirubin conjugated increased [Recovering/Resolving]
  - Chromaturia [Recovering/Resolving]
  - Dizziness [Recovered/Resolved]
  - Blood bilirubin increased [Recovering/Resolving]
  - Pruritus [Recovering/Resolving]
  - Dysgeusia [Not Recovered/Not Resolved]
  - Jaundice [Recovering/Resolving]
  - Fatigue [Recovered/Resolved]
  - Diarrhoea [Unknown]
  - Faeces hard [Unknown]

NARRATIVE: CASE EVENT DATE: 20160120
